FAERS Safety Report 5010577-3 (Version None)
Quarter: 2006Q2

REPORT INFORMATION
  Report Type: 
  Country: None (occurrence: None)
  Receive Date: 20060524
  Receipt Date: 20060524
  Transmission Date: 20061013
  Serious: Yes (Other)
  Sender: FDA-Public Use
  Company Number: None

PATIENT
  Sex: Male

DRUGS (7)
  1. GABAPENTIN [Suspect]
     Indication: BACK PAIN
     Dosage: 600 GM BID PO
     Route: 048
     Dates: start: 20040101
  2. ACETYLSALICYLIC ACID SRT [Concomitant]
  3. MULTIVITAMIN [Concomitant]
  4. ASCORBIC ACID [Concomitant]
  5. TRAMADOL HCL [Concomitant]
  6. VICODIN [Concomitant]
  7. PARACETAMOL [Concomitant]

REACTIONS (6)
  - CONDITION AGGRAVATED [None]
  - DYSPHONIA [None]
  - FACIAL PALSY [None]
  - PARAESTHESIA [None]
  - SENSORY DISTURBANCE [None]
  - SWELLING FACE [None]
